FAERS Safety Report 23320344 (Version 1)
Quarter: 2023Q4

REPORT INFORMATION
  Report Type: Spontaneous
  Country: US (occurrence: US)
  Receive Date: 20231220
  Receipt Date: 20231220
  Transmission Date: 20240110
  Serious: No
  Sender: FDA-Public Use
  Company Number: US-PROVENTION BIO, INC.-US-PRAG-23-00076

PATIENT
  Age: 25 Year
  Sex: Male
  Weight: 68.04 kg

DRUGS (6)
  1. TZIELD [Suspect]
     Active Substance: TEPLIZUMAB-MZWV
     Indication: Diabetes prophylaxis
     Dosage: 122.2 MICROGRAM, SINGLE
     Route: 042
     Dates: start: 20230908, end: 20230908
  2. TZIELD [Suspect]
     Active Substance: TEPLIZUMAB-MZWV
     Dosage: 235 MICROGRAM, SINGLE
     Route: 042
     Dates: start: 20230909, end: 20230909
  3. TZIELD [Suspect]
     Active Substance: TEPLIZUMAB-MZWV
     Dosage: 470 MICROGRAM, SINGLE
     Route: 042
     Dates: start: 20230910, end: 20230910
  4. TZIELD [Suspect]
     Active Substance: TEPLIZUMAB-MZWV
     Dosage: 940 MICROGRAM, SINGLE
     Route: 042
     Dates: start: 20230911, end: 20230911
  5. TZIELD [Suspect]
     Active Substance: TEPLIZUMAB-MZWV
     Dosage: 1936.4 MICROGRAM, SINGLE
     Route: 042
     Dates: start: 20230912, end: 20230921
  6. DIPHENHYDRAMINE HYDROCHLORIDE [Suspect]
     Active Substance: DIPHENHYDRAMINE HYDROCHLORIDE
     Indication: Premedication
     Dosage: UNK
     Dates: start: 20230908

REACTIONS (3)
  - Blood glucose decreased [Recovered/Resolved]
  - Fatigue [Recovered/Resolved]
  - Rash [Recovered/Resolved]

NARRATIVE: CASE EVENT DATE: 20230910
